FAERS Safety Report 6065632-6 (Version None)
Quarter: 2009Q1

REPORT INFORMATION
  Report Type: 
  Country: None (occurrence: None)
  Receive Date: 20090204
  Receipt Date: 20090128
  Transmission Date: 20090719
  Serious: Yes (Death)
  Sender: FDA-Public Use
  Company Number: US-GILEAD-2009-0019937

PATIENT
  Sex: Male

DRUGS (7)
  1. LETAIRIS [Suspect]
     Indication: PULMONARY ARTERIAL HYPERTENSION
     Route: 048
  2. CENTRUM [Concomitant]
  3. DIGOXIN [Concomitant]
  4. ASA LO-DOSE [Concomitant]
  5. PAXIL [Concomitant]
  6. METOPROLOL TARTRATE [Concomitant]
  7. OXYCODONE HCL [Concomitant]

REACTIONS (1)
  - CARDIAC FAILURE [None]
